FAERS Safety Report 10990340 (Version 1)
Quarter: 2015Q2

REPORT INFORMATION
  Report Type: Spontaneous
  Country: US (occurrence: US)
  Receive Date: 20150406
  Receipt Date: 20150406
  Transmission Date: 20150821
  Serious: No
  Sender: FDA-Public Use
  Company Number: US-ASTRAZENECA-2015SE29814

PATIENT
  Age: 27930 Day
  Sex: Male
  Weight: 90.7 kg

DRUGS (1)
  1. BYDUREON [Suspect]
     Active Substance: EXENATIDE
     Indication: TYPE 2 DIABETES MELLITUS
     Route: 058

REACTIONS (5)
  - Underdose [Recovered/Resolved]
  - Injection site swelling [Unknown]
  - Injection site rash [Unknown]
  - Injection site bruising [Recovering/Resolving]
  - Device misuse [Recovered/Resolved]

NARRATIVE: CASE EVENT DATE: 20150322
